FAERS Safety Report 8397470-3 (Version None)
Quarter: 2012Q2

REPORT INFORMATION
  Report Type: 
  Country: None (occurrence: None)
  Receive Date: 20120531
  Receipt Date: 20120521
  Transmission Date: 20120825
  Serious: Yes (Other)
  Sender: FDA-Public Use
  Company Number: JP-JNJFOC-20120518788

PATIENT
  Age: 49 Year
  Sex: Male
  Weight: 64 kg

DRUGS (20)
  1. REMICADE [Suspect]
     Route: 042
     Dates: start: 20110913
  2. REMICADE [Suspect]
     Route: 042
     Dates: start: 20110801
  3. PREDNISOLONE [Concomitant]
     Route: 048
     Dates: start: 20120105
  4. REMICADE [Suspect]
     Indication: COLITIS ULCERATIVE
     Route: 042
     Dates: start: 20111110
  5. PREDNISOLONE [Concomitant]
     Route: 048
     Dates: start: 20111006, end: 20111109
  6. LAC-B [Concomitant]
     Indication: COLITIS ULCERATIVE
     Dosage: START DATE:PRIOR TO STARTING INFLIXIMAB THERAPY
     Route: 048
  7. ACTONEL [Concomitant]
     Indication: PROPHYLAXIS
     Dosage: START DATE:PRIOR TO STARTING INFLIXIMAB THERAPY
     Route: 048
     Dates: end: 20111207
  8. REMICADE [Suspect]
     Route: 042
     Dates: start: 20110816
  9. OMEPRAZOLE [Concomitant]
     Indication: PROPHYLAXIS
     Route: 048
     Dates: start: 20111208
  10. PHELLOBERIN [Concomitant]
     Indication: COLITIS ULCERATIVE
     Dosage: DOSE:6 TAB
     Route: 048
     Dates: start: 20120404
  11. ASACOL [Concomitant]
     Indication: COLITIS ULCERATIVE
     Route: 048
     Dates: start: 20110701
  12. REMICADE [Suspect]
     Route: 042
     Dates: start: 20120302
  13. ALENDRONATE SODIUM [Concomitant]
     Indication: PROPHYLAXIS
     Route: 048
     Dates: start: 20111208
  14. PREDNISOLONE [Concomitant]
     Route: 048
     Dates: start: 20110801, end: 20111005
  15. IMMUNOMODULATOR [Concomitant]
     Indication: COLITIS ULCERATIVE
     Route: 065
     Dates: start: 20120404
  16. PREDNISOLONE [Concomitant]
     Indication: COLITIS ULCERATIVE
     Route: 048
     Dates: start: 20110701, end: 20110731
  17. RABEPRAZOLE SODIUM [Concomitant]
     Indication: PROPHYLAXIS
     Dosage: START DATE:PRIOR TO STARTING INFLIXIMAB THERAPY
     Route: 048
     Dates: end: 20111207
  18. PREDONEMA [Concomitant]
     Indication: COLITIS ULCERATIVE
     Route: 065
     Dates: start: 20120404
  19. REMICADE [Suspect]
     Route: 042
     Dates: start: 20120105
  20. PREDNISOLONE [Concomitant]
     Route: 048
     Dates: start: 20111110

REACTIONS (2)
  - RETINAL DEGENERATION [None]
  - OPTIC NEURITIS [None]
